FAERS Safety Report 10491768 (Version 1)
Quarter: 2014Q4

REPORT INFORMATION
  Report Type: Spontaneous
  Country: US (occurrence: US)
  Receive Date: 20141002
  Receipt Date: 20141002
  Transmission Date: 20150528
  Serious: No
  Sender: FDA-Public Use
  Company Number: US-GLAXOSMITHKLINE-A1059268A

PATIENT
  Age: 74 Year
  Sex: Male

DRUGS (10)
  1. ADVAIR HFA [Suspect]
     Active Substance: FLUTICASONE PROPIONATE\SALMETEROL XINAFOATE
     Indication: PNEUMONIA
     Dosage: 1PUFF FOUR TIMES PER DAY
     Route: 055
     Dates: start: 20140130
  2. PREVACID [Concomitant]
     Active Substance: LANSOPRAZOLE
  3. LISINOPRIL. [Concomitant]
     Active Substance: LISINOPRIL
  4. COUMADIN [Concomitant]
     Active Substance: WARFARIN SODIUM
  5. AMIODARONE [Concomitant]
     Active Substance: AMIODARONE
  6. ASPIRIN. [Concomitant]
     Active Substance: ASPIRIN
  7. ALBUTEROL SULFATE. [Suspect]
     Active Substance: ALBUTEROL SULFATE
     Route: 055
  8. WARFARIN [Concomitant]
     Active Substance: WARFARIN
  9. LEVAQUIN [Concomitant]
     Active Substance: LEVOFLOXACIN
  10. LIPITOR [Concomitant]
     Active Substance: ATORVASTATIN CALCIUM

REACTIONS (2)
  - Palpitations [Unknown]
  - Adverse event [Unknown]

NARRATIVE: CASE EVENT DATE: 20140131
